FAERS Safety Report 16012623 (Version 7)
Quarter: 2021Q2

REPORT INFORMATION
  Report Type: Spontaneous
  Country: US (occurrence: US)
  Receive Date: 20190227
  Receipt Date: 20210419
  Transmission Date: 20210716
  Serious: Yes (Hospitalization, Other)
  Sender: FDA-Public Use
  Company Number: US-ASTRAZENECA-2019SE32228

PATIENT
  Age: 77 Year
  Sex: Female
  Weight: 54.4 kg

DRUGS (13)
  1. METHOTREXATE. [Concomitant]
     Active Substance: METHOTREXATE
     Indication: ARTHRITIS
     Dosage: 7 PILLS ONCE EACH WEEK BY MOUTH
  2. POTASSIUM [Concomitant]
     Active Substance: POTASSIUM
  3. PREDNISONE. [Suspect]
     Active Substance: PREDNISONE
     Indication: ASTHMA
     Route: 055
  4. VOLTAREN [Concomitant]
     Active Substance: DICLOFENAC SODIUM
  5. SALONPAS PAIN RELIEF [Concomitant]
     Active Substance: MENTHOL\METHYL SALICYLATE
  6. SYMBICORT [Suspect]
     Active Substance: BUDESONIDE\FORMOTEROL FUMARATE DIHYDRATE
     Indication: DYSPNOEA
     Dosage: 160/4.5 MCG, UNKNOWN UNKNOWN
     Route: 055
  7. VITAMIN C [Concomitant]
     Active Substance: ASCORBIC ACID
  8. VITAMIN D [Concomitant]
     Active Substance: VITAMIN D NOS
  9. TRAMADOL. [Concomitant]
     Active Substance: TRAMADOL
     Dosage: ONCE A DAY AS NEEDED
     Route: 048
  10. FASENRA [Suspect]
     Active Substance: BENRALIZUMAB
     Indication: ASTHMA
     Route: 058
  11. FASENRA [Suspect]
     Active Substance: BENRALIZUMAB
     Indication: ASTHMA
     Route: 058
  12. PREDNISONE. [Suspect]
     Active Substance: PREDNISONE
     Indication: ASTHMA
     Route: 055
     Dates: start: 1960
  13. PREDNISONE. [Suspect]
     Active Substance: PREDNISONE
     Indication: ASTHMA
     Route: 055

REACTIONS (28)
  - Balance disorder [Unknown]
  - Depression [Recovered/Resolved]
  - Glaucoma [Unknown]
  - Blindness unilateral [Unknown]
  - Gait disturbance [Unknown]
  - Breath sounds abnormal [Unknown]
  - Abdominal pain upper [Unknown]
  - Speech disorder [Recovering/Resolving]
  - Onychoclasis [Unknown]
  - Dyspnoea [Recovering/Resolving]
  - Stress [Unknown]
  - Cataract [Unknown]
  - Abdominal distension [Recovering/Resolving]
  - Frustration tolerance decreased [Unknown]
  - Arthritis [Unknown]
  - Eye pain [Unknown]
  - Pneumonia [Recovered/Resolved]
  - Lung disorder [Recovering/Resolving]
  - Weight increased [Recovering/Resolving]
  - Fall [Unknown]
  - Joint injury [Recovering/Resolving]
  - Pain [Unknown]
  - Peripheral swelling [Recovering/Resolving]
  - Alopecia [Recovered/Resolved]
  - Osteoporosis [Unknown]
  - Asthenia [Recovered/Resolved]
  - Product dose omission issue [Unknown]
  - Diarrhoea [Unknown]

NARRATIVE: CASE EVENT DATE: 2018
